FAERS Safety Report 9433213 (Version 1)
Quarter: 2013Q3

REPORT INFORMATION
  Report Type: Spontaneous
  Country: US (occurrence: US)
  Receive Date: 20130731
  Receipt Date: 20130731
  Transmission Date: 20140515
  Serious: Yes (Other)
  Sender: FDA-Public Use
  Company Number: US-AMGEN-USASP2013052679

PATIENT
  Age: 67 Year
  Sex: Male

DRUGS (1)
  1. XGEVA [Suspect]
     Indication: METASTATIC NEOPLASM
     Dosage: UNK
     Route: 065
     Dates: end: 201307

REACTIONS (1)
  - Osteonecrosis of jaw [Unknown]
